FAERS Safety Report 23270518 (Version 1)
Quarter: 2023Q4

REPORT INFORMATION
  Report Type: Spontaneous
  Country: GR (occurrence: GR)
  Receive Date: 20231207
  Receipt Date: 20231207
  Transmission Date: 20240109
  Serious: Yes (Death)
  Sender: FDA-Public Use
  Company Number: GR-AMGEN-GRCSP2023213746

PATIENT

DRUGS (1)
  1. DARBEPOETIN ALFA [Suspect]
     Active Substance: DARBEPOETIN ALFA
     Indication: End stage renal disease
     Dosage: UNK
     Route: 065

REACTIONS (8)
  - Cardiovascular disorder [Fatal]
  - Ill-defined disorder [Fatal]
  - Cachexia [Fatal]
  - Neoplasm malignant [Fatal]
  - Sudden death [Fatal]
  - Myocardial infarction [Fatal]
  - Infection [Fatal]
  - Cerebrovascular accident [Fatal]
